FAERS Safety Report 17900425 (Version 1)
Quarter: 2020Q2

REPORT INFORMATION
  Report Type: Report from Study
  Country: BR (occurrence: BR)
  Receive Date: 20200616
  Receipt Date: 20200616
  Transmission Date: 20200714
  Serious: Yes (Other)
  Sender: FDA-Public Use
  Company Number: BR-TAKEDA-2017TUS008295

PATIENT
  Age: 43 Year
  Sex: Female

DRUGS (1)
  1. VEDOLIZUMAB [Suspect]
     Active Substance: VEDOLIZUMAB
     Indication: CROHN^S DISEASE
     Dosage: UNK
     Route: 042
     Dates: start: 20160708, end: 2019

REACTIONS (13)
  - Depression [Not Recovered/Not Resolved]
  - Pain [Unknown]
  - Infusion related reaction [Unknown]
  - Anxiety [Not Recovered/Not Resolved]
  - Blindness unilateral [Recovered/Resolved with Sequelae]
  - Abdominal pain [Unknown]
  - Arthralgia [Recovered/Resolved]
  - Product dose omission [Unknown]
  - Crohn^s disease [Recovered/Resolved]
  - Pyoderma [Recovered/Resolved with Sequelae]
  - Arthritis [Unknown]
  - Headache [Unknown]
  - Hypersensitivity [Unknown]

NARRATIVE: CASE EVENT DATE: 20170404
